FAERS Safety Report 13323177 (Version 3)
Quarter: 2017Q1

REPORT INFORMATION
  Report Type: Spontaneous
  Country: JP (occurrence: JP)
  Receive Date: 20170309
  Receipt Date: 20170315
  Transmission Date: 20170428
  Serious: Yes (Hospitalization, Disabling)
  Sender: FDA-Public Use
  Company Number: JP-ELI_LILLY_AND_COMPANY-JP201612009266

PATIENT
  Age: 76 Year
  Sex: Male
  Weight: 66 kg

DRUGS (3)
  1. CYRAMZA [Suspect]
     Active Substance: RAMUCIRUMAB
     Indication: LUNG ADENOCARCINOMA RECURRENT
     Dosage: 600 MG, OTHER
     Route: 042
     Dates: start: 20161107, end: 20161107
  2. DOCETAXEL. [Concomitant]
     Active Substance: DOCETAXEL
     Indication: LUNG ADENOCARCINOMA RECURRENT
     Dosage: 100 MG, OTHER
     Route: 042
     Dates: start: 20161107, end: 20161107
  3. MAGMITT [Concomitant]
     Active Substance: MAGNESIUM OXIDE
     Indication: CONSTIPATION
     Dosage: 330 MG, TID
     Route: 048
     Dates: start: 20150704

REACTIONS (4)
  - Thalamic infarction [Recovered/Resolved with Sequelae]
  - Anal fissure [Unknown]
  - Rectal ulcer [Not Recovered/Not Resolved]
  - Anal fistula [Not Recovered/Not Resolved]

NARRATIVE: CASE EVENT DATE: 20161115
